FAERS Safety Report 16178054 (Version 3)
Quarter: 2020Q1

REPORT INFORMATION
  Report Type: Report from Study
  Country: None (occurrence: CA)
  Receive Date: 20190410
  Receipt Date: 20200227
  Transmission Date: 20200409
  Serious: Yes (Hospitalization)
  Sender: FDA-Public Use
  Company Number: CA-ABBVIE-19K-028-2718623-00

PATIENT
  Sex: Male

DRUGS (2)
  1. HUMIRA [Suspect]
     Active Substance: ADALIMUMAB
     Route: 058
  2. HUMIRA [Suspect]
     Active Substance: ADALIMUMAB
     Indication: CROHN^S DISEASE
     Route: 058
     Dates: start: 20141118

REACTIONS (11)
  - Tongue disorder [Recovering/Resolving]
  - Glossodynia [Unknown]
  - Pain [Not Recovered/Not Resolved]
  - Ear infection [Recovered/Resolved]
  - Dyspepsia [Not Recovered/Not Resolved]
  - Unevaluable event [Not Recovered/Not Resolved]
  - Intestinal obstruction [Unknown]
  - Muscle spasms [Not Recovered/Not Resolved]
  - Clostridium difficile infection [Unknown]
  - Tongue discomfort [Recovering/Resolving]
  - Oropharyngeal pain [Recovered/Resolved]

NARRATIVE: CASE EVENT DATE: 2019
